FAERS Safety Report 8393161-3 (Version None)
Quarter: 2012Q1

REPORT INFORMATION
  Report Type: 
  Country: None (occurrence: None)
  Receive Date: 20120323
  Receipt Date: 20110308
  Transmission Date: 20120608
  Serious: Yes (Hospitalization)
  Sender: FDA-Public Use
  Company Number: 163-21880-11031605

PATIENT
  Age: 56 Year
  Sex: Male
  Weight: 63.5036 kg

DRUGS (18)
  1. REQUIP [Concomitant]
  2. NEURONTIN [Concomitant]
  3. ACYCLOVIR [Concomitant]
  4. SINGULAIR [Concomitant]
  5. ASPIRIN [Concomitant]
  6. LYRICA [Concomitant]
  7. REVLIMID [Suspect]
     Indication: MULTIPLE MYELOMA
     Dosage: 10 MG, DAILY FOR 28 DAYS, PO
     Route: 048
     Dates: start: 20101227, end: 20110308
  8. XANAX [Concomitant]
  9. ZOLOFT [Concomitant]
  10. LIPITOR [Concomitant]
  11. NEXIUM [Concomitant]
  12. DRONABINOL [Concomitant]
  13. ABILIFY [Concomitant]
  14. NIASPAN [Concomitant]
  15. OPANA [Concomitant]
  16. ALLEGRA [Concomitant]
  17. SPIRIVA [Concomitant]
  18. ALBUTEROL [Concomitant]

REACTIONS (2)
  - RESPIRATORY TRACT INFECTION [None]
  - PNEUMONIA PRIMARY ATYPICAL [None]
